FAERS Safety Report 11407605 (Version 5)
Quarter: 2015Q4

REPORT INFORMATION
  Report Type: Report from Study
  Country: TW (occurrence: TW)
  Receive Date: 20150821
  Receipt Date: 20151202
  Transmission Date: 20160304
  Serious: Yes (Death, Hospitalization, Other)
  Sender: FDA-Public Use
  Company Number: TW-ABBVIE-15K-153-1446342-00

PATIENT
  Age: 70 Year
  Sex: Male
  Weight: 42 kg

DRUGS (1)
  1. HUMIRA [Suspect]
     Active Substance: ADALIMUMAB
     Indication: RHEUMATOID ARTHRITIS
     Route: 058
     Dates: start: 20100715, end: 20150326

REACTIONS (5)
  - Gastrointestinal haemorrhage [Fatal]
  - Colon cancer [Fatal]
  - Septic shock [Fatal]
  - Multi-organ failure [Fatal]
  - Hip arthroplasty [Recovered/Resolved]

NARRATIVE: CASE EVENT DATE: 20150412
